FAERS Safety Report 21312342 (Version 5)
Quarter: 2024Q3

REPORT INFORMATION
  Report Type: Spontaneous
  Country: US (occurrence: None)
  Receive Date: 20220909
  Receipt Date: 20240906
  Transmission Date: 20241016
  Serious: No
  Sender: DOMPE FARMACEUTICI
  Company Number: US-ARIS GLOBAL-202205-0974

PATIENT
  Age: 68 Year
  Sex: Female
  Weight: 47.17 kg

DRUGS (24)
  1. OXERVATE [Suspect]
     Active Substance: CENEGERMIN-BKBJ
     Indication: Neurotrophic keratopathy
     Route: 047
     Dates: start: 20220521, end: 20220713
  2. OXERVATE [Suspect]
     Active Substance: CENEGERMIN-BKBJ
     Route: 047
     Dates: start: 20230404
  3. OXERVATE [Suspect]
     Active Substance: CENEGERMIN-BKBJ
     Route: 047
     Dates: start: 20230928, end: 20231123
  4. OXERVATE [Suspect]
     Active Substance: CENEGERMIN-BKBJ
  5. PREDNISOLONE [Concomitant]
     Active Substance: PREDNISOLONE
  6. GINKGO [Concomitant]
     Active Substance: GINKGO
  7. DICYCLOMINE HYDROCHLORIDE [Concomitant]
     Active Substance: DICYCLOMINE HYDROCHLORIDE
  8. LEVOTHYROXINE SODIUM [Concomitant]
     Active Substance: LEVOTHYROXINE SODIUM
  9. LOTEMAX [Concomitant]
     Active Substance: LOTEPREDNOL ETABONATE
     Dosage: DROPS SUSPENSION
  10. BUTALBITAL-ACETAMINOPHEN-CAFFE [Concomitant]
  11. BETAMETHASONE DIPROPIONATE AUGMENTED [Concomitant]
     Active Substance: BETAMETHASONE DIPROPIONATE
  12. FML FORTE [Concomitant]
     Active Substance: FLUOROMETHOLONE
     Dosage: DROPS SUSPENSION
     Dates: start: 20230317, end: 20230327
  13. FLUOROMETHOLONE [Concomitant]
     Active Substance: FLUOROMETHOLONE
     Dosage: DROPS SUSPENSION
  14. RESTASIS [Concomitant]
     Active Substance: CYCLOSPORINE
  15. ENBREL [Concomitant]
     Active Substance: ETANERCEPT
  16. HERBALS\TURMERIC [Concomitant]
     Active Substance: HERBALS\TURMERIC
  17. VITAMIN B12 [Concomitant]
     Active Substance: CYANOCOBALAMIN
  18. VITAMINS [Concomitant]
     Active Substance: VITAMINS
  19. VITAMIN B COMPLEX-VITAMIN C [Concomitant]
  20. BIOTIN [Concomitant]
     Active Substance: BIOTIN
  21. TOPIRAMATE [Concomitant]
     Active Substance: TOPIRAMATE
  22. ALBUMIN COMPOUND [Concomitant]
     Dosage: 3-4 TIMES DAILY
     Dates: start: 20220224
  23. RIZATRIPTAN [Concomitant]
     Active Substance: RIZATRIPTAN
  24. ARTIFICIAL TEARS [Concomitant]

REACTIONS (15)
  - Headache [Not Recovered/Not Resolved]
  - Malaise [Not Recovered/Not Resolved]
  - Fatigue [Not Recovered/Not Resolved]
  - Asthenopia [Unknown]
  - Skin discomfort [Recovered/Resolved]
  - Dry eye [Not Recovered/Not Resolved]
  - Swelling of eyelid [Unknown]
  - Ocular hyperaemia [Unknown]
  - Eye irritation [Not Recovered/Not Resolved]
  - Eye pain [Unknown]
  - Superficial injury of eye [Unknown]
  - Contusion [Unknown]
  - Product dose omission issue [None]
  - Vision blurred [Unknown]
  - Foreign body sensation in eyes [Unknown]
